FAERS Safety Report 6994242-9 (Version None)
Quarter: 2010Q3

REPORT INFORMATION
  Report Type: 
  Country: None (occurrence: None)
  Receive Date: 20100917
  Receipt Date: 20100412
  Transmission Date: 20110219
  Serious: Yes (Other)
  Sender: FDA-Public Use
  Company Number: US-ASTRAZENECA-2009SE19087

PATIENT
  Age: 565 Month
  Sex: Female
  Weight: 94.8 kg

DRUGS (5)
  1. SEROQUEL [Suspect]
     Indication: BIPOLAR DISORDER
     Route: 048
     Dates: start: 20061108
  2. PROZAC [Concomitant]
     Indication: BIPOLAR DISORDER
     Dates: start: 20071201
  3. LITHIUM CARBONATE [Concomitant]
     Route: 048
     Dates: start: 20071201
  4. SINGULAIR [Concomitant]
     Route: 048
     Dates: start: 20071201
  5. DEPAKOTE [Concomitant]
     Indication: BIPOLAR DISORDER
     Dosage: 1000MG-2000MG DAILY
     Dates: start: 20070313

REACTIONS (3)
  - DIABETIC NEUROPATHY [None]
  - TYPE 2 DIABETES MELLITUS [None]
  - WEIGHT INCREASED [None]
